FAERS Safety Report 17464947 (Version 1)
Quarter: 2020Q1

REPORT INFORMATION
  Report Type: Spontaneous
  Country: US (occurrence: US)
  Receive Date: 20200226
  Receipt Date: 20200226
  Transmission Date: 20200409
  Serious: Yes (Other)
  Sender: FDA-Public Use
  Company Number: US-ROCHE-2503235

PATIENT
  Sex: Female

DRUGS (2)
  1. ALECENSA [Suspect]
     Active Substance: ALECTINIB HYDROCHLORIDE
     Indication: NON-SMALL CELL LUNG CANCER
     Dosage: 8 TOTAL PILLS A DAY ;ONGOING: YES
     Route: 048
  2. ALECENSA [Suspect]
     Active Substance: ALECTINIB HYDROCHLORIDE
     Dosage: TOOK 4 TOTAL PILLS A DAY.
     Route: 048

REACTIONS (6)
  - Onychoclasis [Unknown]
  - Pruritus [Recovered/Resolved]
  - Hepatotoxicity [Recovered/Resolved]
  - Wrong dose [Unknown]
  - Dysgeusia [Unknown]
  - Fatigue [Unknown]
